FAERS Safety Report 4713588-8 (Version None)
Quarter: 2005Q3

REPORT INFORMATION
  Report Type: 
  Country: None (occurrence: None)
  Receive Date: 20050711
  Receipt Date: 20050623
  Transmission Date: 20060218
  Serious: Yes (Disabling)
  Sender: FDA-Public Use
  Company Number: 200410606BFR

PATIENT
  Age: 48 Year
  Sex: Female

DRUGS (63)
  1. STALTOR (CERIVASTATIN) [Suspect]
     Dosage: SEE IMAGE
     Dates: start: 19990201
  2. STALTOR (CERIVASTATIN) [Suspect]
     Dosage: SEE IMAGE
     Dates: start: 19990801
  3. STALTOR (CERIVASTATIN) [Suspect]
     Dosage: SEE IMAGE
     Dates: start: 20000620
  4. STALTOR (CERIVASTATIN) [Suspect]
     Dosage: SEE IMAGE
     Dates: start: 20010615
  5. ZOCOR [Suspect]
     Indication: HYPERCHOLESTEROLAEMIA
     Dosage: ORAL
     Route: 048
     Dates: start: 19950104
  6. ATORVASTATIN CALCIUM [Suspect]
     Dates: start: 19981101
  7. PRAVASTATIN [Suspect]
     Dosage: ORAL
     Route: 048
     Dates: start: 20010731
  8. SIMVASTATIN [Suspect]
     Dosage: ORAL
     Route: 048
     Dates: start: 20030130
  9. PRAVASTATIN [Suspect]
     Dates: start: 19950101
  10. LIPANTHYL [Concomitant]
  11. ZYRTEC [Concomitant]
  12. NASALIDE [Concomitant]
  13. PANOS [Concomitant]
  14. ARTHROTEC [Concomitant]
  15. RODOGYL [Concomitant]
  16. CUTERPES [Concomitant]
  17. PONSTYL [Concomitant]
  18. METRONIDAZOLE [Concomitant]
  19. APROVEL [Concomitant]
  20. XENETIX [Concomitant]
  21. CELESTENE [Concomitant]
  22. CELESTAMINE TAB [Concomitant]
  23. METRONIDAZOLE [Concomitant]
  24. ATROVENT [Concomitant]
  25. ROCEPHIN [Concomitant]
  26. SOLU-MEDROL [Concomitant]
  27. SURBRONC [Concomitant]
  28. TOPALGIC [Concomitant]
  29. MANTADIX [Concomitant]
  30. NASACORT [Concomitant]
  31. CLIMARA [Concomitant]
  32. COAPROVEL [Concomitant]
  33. QUESTRAN [Concomitant]
  34. KARDEGIC [Concomitant]
  35. AMLODIPINE BESYLATE [Concomitant]
  36. ESTRADIOL [Concomitant]
  37. UTROGESTAN [Concomitant]
  38. MUCOMYST [Concomitant]
  39. LIPUR [Concomitant]
  40. LIORESAL [Concomitant]
  41. VAGOSTABYL [Concomitant]
  42. LAROXYL [Concomitant]
  43. LOCABIOTAL [Concomitant]
  44. TETANUS VACCINE [Concomitant]
  45. MAGNE-B6 [Concomitant]
  46. COLTRAMYL [Concomitant]
  47. DOTAREM [Concomitant]
  48. ZALDIAR [Concomitant]
  49. BETAMETHASONE DIPROPIONATE [Concomitant]
  50. XYZALL [Concomitant]
  51. VITAMIN B12 ROCHE [Concomitant]
  52. MESOCAIN [Concomitant]
  53. PROFENID [Concomitant]
  54. STRESAM [Concomitant]
  55. CORTANCYL [Concomitant]
  56. PYOSTACINE [Concomitant]
  57. PHYSIOMER [Concomitant]
  58. EMLA [Concomitant]
  59. LEXOMIL [Concomitant]
  60. METHOCARBAMOL [Concomitant]
  61. LEVOCARNIL [Concomitant]
  62. MODOPAR [Concomitant]
  63. DICODIN [Concomitant]

REACTIONS (11)
  - ABDOMINAL PAIN [None]
  - DECREASED ACTIVITY [None]
  - DIARRHOEA [None]
  - DIFFICULTY IN WALKING [None]
  - FIBROMYALGIA [None]
  - INSOMNIA [None]
  - INTERVERTEBRAL DISC DEGENERATION [None]
  - MUSCLE SPASMS [None]
  - MUSCULAR WEAKNESS [None]
  - MUSCULOSKELETAL PAIN [None]
  - PARESIS [None]
